FAERS Safety Report 21343216 (Version 3)
Quarter: 2022Q4

REPORT INFORMATION
  Report Type: Report from Study
  Country: MX (occurrence: None)
  Receive Date: 20220916
  Receipt Date: 20221014
  Transmission Date: 20230113
  Serious: Yes (Hospitalization)
  Sender: FDA-Public Use
  Company Number: MX-ROCHE-3180319

PATIENT
  Age: 44 Year
  Sex: Female
  Weight: 64.4 kg

DRUGS (12)
  1. RITUXIMAB [Suspect]
     Active Substance: RITUXIMAB
     Indication: Diffuse large B-cell lymphoma
     Dosage: DOSE OF LAST RITUXIMAB ADMINISTERED PRIOR TO AE AND SAE ONSET: 24/AUG/2022 (608 MG)
     Route: 041
     Dates: start: 20220824
  2. OXALIPLATIN [Suspect]
     Active Substance: OXALIPLATIN
     Indication: Diffuse large B-cell lymphoma
     Dosage: DOSE OF LAST OXALIPLATIN ADMINISTERED PRIOR TO AE AND SAE ONSET 25/AUG/2022(162MG)
     Route: 042
     Dates: start: 20220825
  3. GEMCITABINE [Suspect]
     Active Substance: GEMCITABINE
     Indication: Diffuse large B-cell lymphoma
     Dosage: DOSE OF LAST GEMCITABINE ADMINISTERED PRIOR TO AE AND SAE ONSET 25/AUG/2022(1620MG)
     Route: 042
     Dates: start: 20220825
  4. KETOROLAC TROMETHAMINE [Concomitant]
     Active Substance: KETOROLAC TROMETHAMINE
     Route: 048
     Dates: start: 20220818, end: 20220818
  5. ACETAMINOPHEN [Concomitant]
     Active Substance: ACETAMINOPHEN
     Route: 048
     Dates: start: 20220824, end: 20220824
  6. HYDROCORTISONE [Concomitant]
     Active Substance: HYDROCORTISONE
     Route: 042
     Dates: start: 20220824, end: 20220824
  7. DIPHENHYDRAMINE [Concomitant]
     Active Substance: DIPHENHYDRAMINE
     Route: 042
     Dates: start: 20220824, end: 20220824
  8. VANCOMYCIN [Concomitant]
     Active Substance: VANCOMYCIN
     Indication: Pyrexia
     Route: 042
     Dates: start: 20220912, end: 20220912
  9. VANCOMYCIN [Concomitant]
     Active Substance: VANCOMYCIN
     Route: 042
     Dates: start: 20220913, end: 20220919
  10. IMIPENEM [Concomitant]
     Active Substance: IMIPENEM
     Indication: Pyrexia
     Route: 042
     Dates: start: 20220913, end: 20220919
  11. IMIPENEM [Concomitant]
     Active Substance: IMIPENEM
     Route: 042
     Dates: start: 20220912, end: 20220912
  12. ONDANSETRON [Concomitant]
     Active Substance: ONDANSETRON
     Route: 042
     Dates: start: 20220912, end: 20220919

REACTIONS (1)
  - Sepsis [Recovered/Resolved]

NARRATIVE: CASE EVENT DATE: 20220912
